FAERS Safety Report 7227538-6 (Version None)
Quarter: 2011Q1

REPORT INFORMATION
  Report Type: 
  Country: None (occurrence: None)
  Receive Date: 20110114
  Receipt Date: 20101123
  Transmission Date: 20110831
  Serious: Yes (Hospitalization, Other)
  Sender: FDA-Public Use
  Company Number: US-BAYER-201029649NA

PATIENT
  Sex: Female
  Weight: 70.295 kg

DRUGS (7)
  1. YASMIN [Suspect]
     Indication: CONTRACEPTION
     Dosage: UNK
     Route: 048
     Dates: start: 20020101, end: 20060101
  2. LEVORA 0.15/30-28 [Concomitant]
     Dosage: UNK
     Dates: start: 20100101
  3. MICROGESTIN 1.5/30 [Concomitant]
     Dosage: UNK
     Dates: start: 20080101, end: 20100101
  4. IBUPROFEN [Concomitant]
     Indication: DYSMENORRHOEA
  5. UNCODEABLE ^UNCLASSIFIABLE^ [Concomitant]
  6. UNCODEABLE ^UNCLASSIFIABLE^ [Concomitant]
  7. UNCODEABLE ^UNCLASSIFIABLE^ [Concomitant]

REACTIONS (3)
  - CHOLELITHIASIS [None]
  - JAUNDICE [None]
  - PAIN [None]
